FAERS Safety Report 14624514 (Version 1)
Quarter: 2018Q1

REPORT INFORMATION
  Report Type: Spontaneous
  Country: US (occurrence: US)
  Receive Date: 20180311
  Receipt Date: 20180311
  Transmission Date: 20180509
  Serious: Yes (Death)
  Sender: FDA-Public Use
  Company Number: None

PATIENT
  Age: 79 Year
  Sex: Male
  Weight: 69.75 kg

DRUGS (1)
  1. DEPO-MEDROL [Suspect]
     Active Substance: METHYLPREDNISOLONE ACETATE
     Indication: ARTHRITIS
     Dosage: ?          QUANTITY:7 INJECTION(S);?
     Route: 008

REACTIONS (6)
  - Product use in unapproved indication [None]
  - Device use error [None]
  - Sudden death [None]
  - General physical health deterioration [None]
  - Pain [None]
  - Wrong technique in product usage process [None]

NARRATIVE: CASE EVENT DATE: 20170907
